FAERS Safety Report 9602236 (Version 1)
Quarter: 2013Q4

REPORT INFORMATION
  Report Type: Spontaneous
  Country: IT (occurrence: None)
  Receive Date: 20131003
  Receipt Date: 20131003
  Transmission Date: 20140711
  Serious: Yes (Other)
  Sender: FDA-Public Use
  Company Number: SYM-2013-11145

PATIENT
  Sex: 0

DRUGS (3)
  1. FLUOROURACIL (FLUOROURACIL) (FLUOROURACIL) [Suspect]
     Indication: GASTRIC CANCER
  2. IRINOTECAN [Suspect]
     Indication: GASTRIC CANCER
     Dosage: 180 MG/M2
  3. LEUCOVORIN (FOLINIC ACID) [Suspect]
     Indication: GASTRIC CANCER
     Dosage: 100 MG/M2

REACTIONS (1)
  - Neutropenia [None]
